FAERS Safety Report 4501033-7 (Version None)
Quarter: 2004Q4

REPORT INFORMATION
  Report Type: 
  Country: None (occurrence: None)
  Receive Date: 20041109
  Receipt Date: 20041022
  Transmission Date: 20050328
  Serious: Yes (Hospitalization)
  Sender: FDA-Public Use
  Company Number: USA041080096

PATIENT
  Age: 79 Year
  Sex: Female

DRUGS (5)
  1. CYMBALTA [Suspect]
     Indication: DEPRESSION
  2. METOPROLOL [Concomitant]
  3. LANOXIN (DIGOXION STREULI) [Concomitant]
  4. COUMADIN [Concomitant]
  5. FOSAMAX [Concomitant]

REACTIONS (8)
  - BLOOD CALCIUM DECREASED [None]
  - BLOOD CHLORIDE DECREASED [None]
  - BLOOD OSMOLARITY DECREASED [None]
  - DELIRIUM [None]
  - HYPONATRAEMIA [None]
  - LETHARGY [None]
  - MENTAL STATUS CHANGES [None]
  - URINE KETONE BODY PRESENT [None]
